FAERS Safety Report 18097019 (Version 1)
Quarter: 2020Q3

REPORT INFORMATION
  Report Type: Spontaneous
  Country: CN (occurrence: CN)
  Receive Date: 20200731
  Receipt Date: 20200731
  Transmission Date: 20201103
  Serious: Yes (Death, Hospitalization, Other)
  Sender: FDA-Public Use
  Company Number: CN-ASTELLAS-2020US025791

PATIENT
  Age: 25 Year
  Sex: Male

DRUGS (1)
  1. TACROLIMUS. [Suspect]
     Active Substance: TACROLIMUS
     Indication: PROPHYLAXIS AGAINST TRANSPLANT REJECTION
     Dosage: UNK UNK, UNKNOWN FREQ.
     Route: 065

REACTIONS (12)
  - Epstein-Barr virus infection [Unknown]
  - Acinetobacter infection [Unknown]
  - Staphylococcal infection [Unknown]
  - Pneumocystis jirovecii infection [Unknown]
  - Acute respiratory distress syndrome [Fatal]
  - Cytomegalovirus infection [Unknown]
  - Hyperglycaemia [Recovered/Resolved]
  - Enterobacter infection [Unknown]
  - Bronchopulmonary aspergillosis [Unknown]
  - Lung abscess [Unknown]
  - Respiratory moniliasis [Unknown]
  - Pneumonia pseudomonal [Unknown]

NARRATIVE: CASE EVENT DATE: 201708
